FAERS Safety Report 9401250 (Version 1)
Quarter: 2013Q3

REPORT INFORMATION
  Report Type: Spontaneous
  Country: US (occurrence: US)
  Receive Date: 20130715
  Receipt Date: 20130715
  Transmission Date: 20140515
  Serious: Yes (Other)
  Sender: FDA-Public Use
  Company Number: US-PFIZER INC-2013202226

PATIENT
  Sex: Male

DRUGS (1)
  1. VIAGRA [Suspect]
     Dosage: UNK

REACTIONS (5)
  - Aneurysm [Unknown]
  - Rectal fissure [Unknown]
  - Diabetes mellitus [Unknown]
  - Dyspnoea [Unknown]
  - Renal disorder [Unknown]
